FAERS Safety Report 15355633 (Version 1)
Quarter: 2018Q3

REPORT INFORMATION
  Report Type: Spontaneous
  Country: US (occurrence: US)
  Receive Date: 20180906
  Receipt Date: 20180906
  Transmission Date: 20181010
  Serious: Yes (Hospitalization, Congenital Anomaly, Other)
  Sender: FDA-Public Use
  Company Number: US-AMAG PHARMACEUTICALS, INC.-AMAG201804614

PATIENT
  Sex: Male

DRUGS (1)
  1. MAKENA [Suspect]
     Active Substance: HYDROXYPROGESTERONE CAPROATE
     Indication: PRODUCT USED FOR UNKNOWN INDICATION
     Dosage: UNK
     Route: 064
     Dates: start: 2017, end: 2017

REACTIONS (3)
  - Premature baby [Recovered/Resolved]
  - Dysphagia [Not Recovered/Not Resolved]
  - Plagiocephaly [Not Recovered/Not Resolved]

NARRATIVE: CASE EVENT DATE: 2017
